FAERS Safety Report 6973597-5 (Version None)
Quarter: 2010Q3

REPORT INFORMATION
  Report Type: 
  Country: None (occurrence: None)
  Receive Date: 20100907
  Receipt Date: 20100901
  Transmission Date: 20110219
  Serious: Yes (Hospitalization, Other)
  Sender: FDA-Public Use
  Company Number: 2010SP043254

PATIENT
  Age: 39 Year
  Sex: Male
  Weight: 51.3 kg

DRUGS (11)
  1. REMERON [Suspect]
     Indication: ADJUSTMENT DISORDER
     Dosage: 15 MG; QD; PO
     Route: 048
     Dates: start: 20100730, end: 20100804
  2. BUP-4 (PROPIVERINE HYDROCHLORIDE /01241602/) [Suspect]
     Indication: POLLAKIURIA
     Dosage: 20 MG; ;PO
     Route: 048
     Dates: start: 20100729, end: 20100804
  3. LANSOPRAZOLE [Concomitant]
  4. DEPAS [Concomitant]
  5. ROHYPNOL [Concomitant]
  6. LENDORMIN D [Concomitant]
  7. MAGMITT [Concomitant]
  8. GASCON [Concomitant]
  9. LOXONIN [Concomitant]
  10. MUCOSTA [Concomitant]
  11. RISUMIC [Concomitant]

REACTIONS (8)
  - ALANINE AMINOTRANSFERASE INCREASED [None]
  - ASPARTATE AMINOTRANSFERASE INCREASED [None]
  - BURNING SENSATION [None]
  - LIVER DISORDER [None]
  - OEDEMA PERIPHERAL [None]
  - POLLAKIURIA [None]
  - RHABDOMYOLYSIS [None]
  - WHITE BLOOD CELL COUNT DECREASED [None]
